FAERS Safety Report 7307818-6 (Version None)
Quarter: 2011Q1

REPORT INFORMATION
  Report Type: 
  Country: None (occurrence: None)
  Receive Date: 20110223
  Receipt Date: 20110215
  Transmission Date: 20110831
  Serious: Yes (Life-Threatening, Hospitalization, Other)
  Sender: FDA-Public Use
  Company Number: JP-BAYER-201015196BYL

PATIENT
  Sex: Female
  Weight: 34 kg

DRUGS (9)
  1. TAKEPRON [Concomitant]
     Dosage: DAILY DOSE 15 MG
     Route: 048
     Dates: start: 20100629
  2. PREDONINE [Concomitant]
     Dosage: DAILY DOSE 5 MG
     Route: 065
     Dates: start: 20100629
  3. NEXAVAR [Suspect]
     Indication: RENAL CELL CARCINOMA
     Dosage: 400 MG, QD
     Route: 048
     Dates: start: 20100629, end: 20100817
  4. MUCOSTA [Concomitant]
     Dosage: DAILY DOSE 200 MG
     Route: 048
     Dates: start: 20100629
  5. NEXAVAR [Suspect]
     Dosage: DAILY DOSE 400 MG
     Route: 048
     Dates: start: 20100831, end: 20101012
  6. PROGRAF [Concomitant]
     Dosage: DAILY DOSE 2 MG
     Route: 048
     Dates: start: 20100629
  7. LOXONIN [Concomitant]
     Dosage: DAILY DOSE 120 MG
     Route: 048
     Dates: start: 20100629
  8. ONEALFA [Concomitant]
     Dosage: DAILY DOSE .5 ?G
     Route: 048
     Dates: start: 20100629
  9. PROMAC [POLAPREZINC] [Concomitant]
     Dosage: DAILY DOSE 150 MG
     Route: 048
     Dates: start: 20100629

REACTIONS (2)
  - PNEUMOTHORAX [None]
  - AORTIC DISSECTION [None]
